FAERS Safety Report 15224745 (Version 1)
Quarter: 2018Q3

REPORT INFORMATION
  Report Type: Report from Study
  Country: US (occurrence: US)
  Receive Date: 20180731
  Receipt Date: 20180731
  Transmission Date: 20181010
  Serious: No
  Sender: FDA-Public Use
  Company Number: US-BIOVERATIV-2018BV000491

PATIENT
  Sex: Male

DRUGS (1)
  1. ALPROLIX [Suspect]
     Active Substance: EFTRENONACOG ALFA
     Indication: FACTOR IX DEFICIENCY
     Dosage: DOSING EVERY 7 DAYS?THURSDAY
     Route: 042
     Dates: start: 201406

REACTIONS (3)
  - Injury [Unknown]
  - Haemorrhage [Unknown]
  - Haemarthrosis [Unknown]
